FAERS Safety Report 10242303 (Version 1)
Quarter: 2014Q2

REPORT INFORMATION
  Report Type: Spontaneous
  Country: NL (occurrence: NL)
  Receive Date: 20140617
  Receipt Date: 20140617
  Transmission Date: 20141212
  Serious: Yes (Hospitalization)
  Sender: FDA-Public Use
  Company Number: NL-PFIZER INC-2014162070

PATIENT
  Age: 67 Year
  Sex: Female

DRUGS (1)
  1. LIPITOR [Suspect]
     Indication: ANGINA PECTORIS
     Dosage: 40 MG, 1X/DAY
     Dates: start: 20050519, end: 20140515

REACTIONS (4)
  - Liver function test abnormal [Recovering/Resolving]
  - Cholestasis [Recovering/Resolving]
  - Abdominal pain upper [Recovering/Resolving]
  - Blood glucose increased [Recovering/Resolving]
